FAERS Safety Report 8448682-1 (Version None)
Quarter: 2012Q2

REPORT INFORMATION
  Report Type: 
  Country: None (occurrence: None)
  Receive Date: 20120619
  Receipt Date: 20120613
  Transmission Date: 20120825
  Serious: Yes (Hospitalization, Disabling, Other)
  Sender: FDA-Public Use
  Company Number: US-MERCK-1112USA00798

PATIENT
  Age: 65 Year
  Sex: Female
  Weight: 65 kg

DRUGS (11)
  1. FOSAMAX [Suspect]
     Indication: OSTEOPOROSIS
     Route: 048
     Dates: start: 19980101, end: 20010401
  2. FOSAMAX [Suspect]
     Indication: OSTEOPOROSIS PROPHYLAXIS
     Route: 048
     Dates: start: 20080201, end: 20080101
  3. ALENDRONATE SODIUM [Suspect]
     Indication: OSTEOPOROSIS
     Route: 048
     Dates: start: 20080201, end: 20080101
  4. FOSAMAX [Suspect]
     Route: 048
     Dates: start: 20010501, end: 20080101
  5. PREDNISONE TAB [Suspect]
     Indication: DERMATOMYOSITIS
     Route: 065
     Dates: start: 20021201, end: 20080201
  6. RECLAST [Suspect]
     Indication: OSTEOPOROSIS
     Route: 041
  7. FOSAMAX [Suspect]
     Route: 048
     Dates: start: 20010501, end: 20080101
  8. FOSAMAX [Suspect]
     Route: 048
     Dates: start: 20080201, end: 20080101
  9. ALENDRONATE SODIUM [Suspect]
     Indication: OSTEOPOROSIS PROPHYLAXIS
     Route: 048
     Dates: start: 20080201, end: 20080101
  10. FOSAMAX [Suspect]
     Indication: OSTEOPENIA
     Route: 048
     Dates: start: 19980101, end: 20010401
  11. ESOMEPRAZOLE [Concomitant]
     Route: 065
     Dates: start: 20070101, end: 20090101

REACTIONS (44)
  - HAEMORRHAGIC ANAEMIA [None]
  - ESSENTIAL HYPERTENSION [None]
  - FOOT DEFORMITY [None]
  - GASTROOESOPHAGEAL REFLUX DISEASE [None]
  - FEMUR FRACTURE [None]
  - OSTEONECROSIS [None]
  - CAROTID ARTERY STENOSIS [None]
  - FLUSHING [None]
  - FALL [None]
  - SOFT TISSUE INJURY [None]
  - ARTHRALGIA [None]
  - EAR DISORDER [None]
  - LOW TURNOVER OSTEOPATHY [None]
  - BURSITIS [None]
  - CONTUSION [None]
  - HERPES ZOSTER [None]
  - DYSPHONIA [None]
  - VERTIGO [None]
  - NAIL INFECTION [None]
  - DERMATOMYOSITIS [None]
  - CERUMEN IMPACTION [None]
  - SYSTEMIC LUPUS ERYTHEMATOSUS [None]
  - ARTHROPATHY [None]
  - ADVERSE DRUG REACTION [None]
  - GASTRIC DISORDER [None]
  - TACHYCARDIA [None]
  - TINNITUS [None]
  - LIVER FUNCTION TEST ABNORMAL [None]
  - DEAFNESS NEUROSENSORY [None]
  - ANAEMIA [None]
  - OSTEOARTHRITIS [None]
  - CARDIAC DISORDER [None]
  - BENIGN NEOPLASM OF SKIN [None]
  - HYPERKERATOSIS [None]
  - ARRHYTHMIA [None]
  - HEADACHE [None]
  - PRURITUS [None]
  - CELLULITIS [None]
  - ARTHRITIS [None]
  - TYMPANIC MEMBRANE PERFORATION [None]
  - EXOSTOSIS [None]
  - PALPITATIONS [None]
  - BACK PAIN [None]
  - JOINT EFFUSION [None]
